FAERS Safety Report 5248358-8 (Version None)
Quarter: 2007Q1

REPORT INFORMATION
  Report Type: 
  Country: None (occurrence: None)
  Receive Date: 20070222
  Receipt Date: 20070212
  Transmission Date: 20070707
  Serious: No
  Sender: FDA-Public Use
  Company Number: TAP2007Q00199

PATIENT
  Age: 16 Year
  Sex: Female
  Weight: 45.8 kg

DRUGS (3)
  1. LUPRON DEPOT [Suspect]
     Indication: ENDOMETRIOSIS
     Dosage: 3.75 MG, 1 IN 1 M, INTRAMUSCULAR
     Route: 030
     Dates: start: 20060301, end: 20061228
  2. LORTAB [Concomitant]
  3. NORETHINDRONE ACETATE (NORETHISTERONE ACETATE) [Concomitant]

REACTIONS (10)
  - ALOPECIA [None]
  - BACK PAIN [None]
  - BLOOD CORTICOTROPHIN DECREASED [None]
  - BLOOD CORTISOL DECREASED [None]
  - FATIGUE [None]
  - HOT FLUSH [None]
  - INSOMNIA [None]
  - MIGRAINE [None]
  - TACHYCARDIA [None]
  - WEIGHT DECREASED [None]
